FAERS Safety Report 6438196-2 (Version None)
Quarter: 2009Q4

REPORT INFORMATION
  Report Type: 
  Country: None (occurrence: None)
  Receive Date: 20091112
  Receipt Date: 20091103
  Transmission Date: 20100525
  Serious: Yes (Death, Other)
  Sender: FDA-Public Use
  Company Number: HQWYE583128JUL05

PATIENT
  Sex: Female
  Weight: 123.49 kg

DRUGS (3)
  1. PREMARIN [Suspect]
  2. MEDROXYPROGESTERONE [Suspect]
  3. PROVERA [Suspect]

REACTIONS (1)
  - BREAST CANCER IN SITU [None]
